FAERS Safety Report 8436703-1 (Version None)
Quarter: 2012Q2

REPORT INFORMATION
  Report Type: 
  Country: None (occurrence: None)
  Receive Date: 20120614
  Receipt Date: 20120605
  Transmission Date: 20120825
  Serious: Yes (Other)
  Sender: FDA-Public Use
  Company Number: US-ASTRAZENECA-2011SE26822

PATIENT
  Age: 761 Month
  Sex: Female
  Weight: 73.5 kg

DRUGS (20)
  1. SEROQUEL [Suspect]
     Route: 048
     Dates: start: 20090201, end: 20100501
  2. VITAMIN [Concomitant]
  3. SYNTHROID [Concomitant]
  4. CALCIUM [Concomitant]
  5. VALIUM [Concomitant]
  6. VIT D AND CALCIUM [Concomitant]
  7. PROMETHEZINE [Concomitant]
  8. PAXIL [Concomitant]
  9. SEROQUEL [Suspect]
     Indication: BIPOLAR DISORDER
     Route: 048
     Dates: start: 20100101
  10. LITHIUM [Concomitant]
  11. ZYRTEC [Concomitant]
  12. SEROQUEL [Suspect]
     Dosage: HALF AT 10 P FOLLOWED BY OTHER HALF AT 11P
     Route: 048
  13. NEURONTIN [Concomitant]
  14. SEROQUEL [Suspect]
     Route: 048
     Dates: start: 20090101
  15. INDERAL [Concomitant]
  16. LITHIUM [Concomitant]
  17. SEROQUEL [Suspect]
     Route: 048
  18. POTASSIUM CHLORIDE [Concomitant]
  19. VALIUM [Concomitant]
  20. NUROTINE [Concomitant]

REACTIONS (14)
  - MALAISE [None]
  - MANIA [None]
  - WEIGHT INCREASED [None]
  - HYPERSOMNIA [None]
  - INTENTIONAL DRUG MISUSE [None]
  - ROAD TRAFFIC ACCIDENT [None]
  - OFF LABEL USE [None]
  - HUNGER [None]
  - PRESYNCOPE [None]
  - MENISCUS LESION [None]
  - DIZZINESS [None]
  - HYPERTENSION [None]
  - VIITH NERVE INJURY [None]
  - SOMNOLENCE [None]
